FAERS Safety Report 7384520-6 (Version None)
Quarter: 2011Q1

REPORT INFORMATION
  Report Type: 
  Country: None (occurrence: None)
  Receive Date: 20110322
  Receipt Date: 20110315
  Transmission Date: 20110831
  Serious: Yes (Other)
  Sender: FDA-Public Use
  Company Number: CL-300-2011

PATIENT
  Age: 82 Year
  Sex: Female

DRUGS (2)
  1. AMITRIPTYLINE HCL [Suspect]
     Indication: INSOMNIA
     Dosage: 50 MG OD
  2. AMIODARONE HCL [Suspect]
     Indication: ATRIAL FIBRILLATION
     Dosage: 200 MG OD

REACTIONS (4)
  - TREMOR [None]
  - DRY MOUTH [None]
  - DYSARTHRIA [None]
  - DYSKINESIA [None]
